FAERS Safety Report 9726045 (Version 2)
Quarter: 2013Q4

REPORT INFORMATION
  Report Type: Spontaneous
  Country: BR (occurrence: BR)
  Receive Date: 20131203
  Receipt Date: 20131203
  Transmission Date: 20140711
  Serious: Yes (Other)
  Sender: FDA-Public Use
  Company Number: BR-PFIZER INC-2013335313

PATIENT
  Age: 70 Year
  Sex: Female

DRUGS (7)
  1. CHAMPIX [Suspect]
     Indication: SMOKING CESSATION THERAPY
     Dosage: UNK
     Route: 048
     Dates: start: 20131106, end: 201311
  2. CHAMPIX [Interacting]
     Dosage: UNK, 2X/DAY
     Route: 048
     Dates: start: 201311, end: 20131121
  3. LOSARTAN [Concomitant]
     Indication: HYPERTENSION
     Dosage: 1 DF, DAILY
  4. LOSARTAN [Concomitant]
     Indication: BLOOD PRESSURE ABNORMAL
  5. VITAMIN D [Concomitant]
     Indication: VITAMIN SUPPLEMENTATION
     Dosage: 18 GTT, UNK
     Dates: start: 201310
  6. SERTRALINE [Concomitant]
     Dosage: UNK
  7. RIVOTRIL [Concomitant]
     Indication: SLEEP DISORDER
     Dosage: UNK

REACTIONS (5)
  - Drug interaction [Recovered/Resolved]
  - Dizziness [Recovered/Resolved]
  - Road traffic accident [Unknown]
  - Crepitations [Unknown]
  - Dizziness postural [Unknown]
